FAERS Safety Report 18251912 (Version 8)
Quarter: 2021Q2

REPORT INFORMATION
  Report Type: Report from Study
  Country: US (occurrence: US)
  Receive Date: 20200910
  Receipt Date: 20210502
  Transmission Date: 20210717
  Serious: Yes (Hospitalization, Other)
  Sender: FDA-Public Use
  Company Number: NVSC2020US247594

PATIENT
  Age: 68 Year
  Sex: Male

DRUGS (2)
  1. ENTRESTO [Suspect]
     Active Substance: SACUBITRIL\VALSARTAN
     Indication: PRODUCT USED FOR UNKNOWN INDICATION
     Dosage: 100 MG, BID (49/51 MG)
     Route: 048
     Dates: start: 202008
  2. ENTRESTO [Suspect]
     Active Substance: SACUBITRIL\VALSARTAN
     Dosage: 200 MG, BID (97/103 MG)
     Route: 048

REACTIONS (9)
  - Loss of consciousness [Unknown]
  - Cataract [Not Recovered/Not Resolved]
  - Dizziness [Recovering/Resolving]
  - Dizziness postural [Not Recovered/Not Resolved]
  - Influenza [Recovering/Resolving]
  - Product dispensing error [Unknown]
  - Dehydration [Unknown]
  - Depression [Unknown]
  - Blood glucose increased [Recovering/Resolving]

NARRATIVE: CASE EVENT DATE: 202008
